FAERS Safety Report 9115347 (Version 1)
Quarter: 2013Q1

REPORT INFORMATION
  Report Type: Spontaneous
  Country: US (occurrence: None)
  Receive Date: 20130221
  Receipt Date: 20130221
  Transmission Date: 20140127
  Serious: Yes (Hospitalization)
  Sender: FDA-Public Use
  Company Number: None

PATIENT
  Age: 50 Year
  Sex: Female
  Weight: 84.5 kg

DRUGS (2)
  1. DOCETAXEL 80MG ACCORD [Suspect]
     Dosage: 80MG Q21D IV
     Route: 042
     Dates: start: 20130121
  2. DOCETAXEL 20MG ACCORD [Suspect]
     Dosage: 60MG Q21D IV
     Route: 042

REACTIONS (1)
  - Peripheral motor neuropathy [None]
